FAERS Safety Report 9242203 (Version 1)
Quarter: 2013Q2

REPORT INFORMATION
  Report Type: Spontaneous
  Country: CN (occurrence: CN)
  Receive Date: 20130419
  Receipt Date: 20130419
  Transmission Date: 20140414
  Serious: Yes (Other)
  Sender: FDA-Public Use
  Company Number: CN-JNJFOC-20130409991

PATIENT
  Sex: 0

DRUGS (4)
  1. TOPAMAX [Suspect]
     Indication: MIGRAINE
     Route: 048
  2. TOPAMAX [Suspect]
     Indication: MIGRAINE
     Dosage: 25 MG ONCE IN MORNING AND 50 MG ONCE IN NIGHT IN THE THIRD WEEK
     Route: 048
  3. TOPAMAX [Suspect]
     Indication: MIGRAINE
     Route: 048
  4. TOPAMAX [Suspect]
     Indication: MIGRAINE
     Route: 048

REACTIONS (1)
  - Deafness [Unknown]
